FAERS Safety Report 8024118-X (Version None)
Quarter: 2012Q1

REPORT INFORMATION
  Report Type: 
  Country: None (occurrence: None)
  Receive Date: 20120103
  Receipt Date: 20111221
  Transmission Date: 20120608
  Serious: Yes (Congenital Anomaly)
  Sender: FDA-Public Use
  Company Number: 1000026487

PATIENT
  Sex: Male

DRUGS (3)
  1. CELEXA [Suspect]
     Indication: DEPRESSION
     Dosage: 40 MG (40 MG, 1 IN 1 D), TRANSPLACENTAL
     Route: 064
     Dates: start: 20100401, end: 20100601
  2. KEPPRA [Concomitant]
  3. LAMICTAL [Concomitant]

REACTIONS (4)
  - PULMONARY OEDEMA NEONATAL [None]
  - MATERNAL DRUGS AFFECTING FOETUS [None]
  - CARDIAC MURMUR [None]
  - PATENT DUCTUS ARTERIOSUS [None]
